FAERS Safety Report 5654613-X (Version None)
Quarter: 2008Q1

REPORT INFORMATION
  Report Type: 
  Country: None (occurrence: None)
  Receive Date: 20080307
  Receipt Date: 20080227
  Transmission Date: 20080703
  Serious: Yes (Life-Threatening)
  Sender: FDA-Public Use
  Company Number: NL-JNJFOC-20080207086

PATIENT
  Sex: Male
  Weight: 80 kg

DRUGS (9)
  1. REMICADE [Suspect]
     Indication: ANKYLOSING SPONDYLITIS
     Dosage: 2.5 YEARS
     Route: 042
  2. ACETYLSALICYLZUUR [Concomitant]
  3. METOPROLOL TARTRATE [Concomitant]
  4. SELEKTINE [Concomitant]
     Route: 048
  5. LOSEC MUPS [Concomitant]
     Route: 048
  6. DIDROKIT [Concomitant]
  7. DICLOFENAC SODIUM [Concomitant]
  8. DICLOFENAC SODIUM [Concomitant]
  9. PROMOCARD [Concomitant]

REACTIONS (1)
  - LUNG NEOPLASM MALIGNANT [None]
